FAERS Safety Report 4862081-0 (Version None)
Quarter: 2005Q4

REPORT INFORMATION
  Report Type: 
  Country: None (occurrence: None)
  Receive Date: 20051130
  Receipt Date: 20041213
  Transmission Date: 20060501
  Serious: Yes (Other)
  Sender: FDA-Public Use
  Company Number: PHEH2004US12408

PATIENT
  Age: 46 Year
  Sex: Male
  Weight: 180 kg

DRUGS (1)
  1. LAMISIL [Suspect]
     Indication: NAIL TINEA
     Dosage: 250 MG, QD, ORAL
     Route: 048
     Dates: start: 20040610, end: 20041101

REACTIONS (2)
  - NEUTROPENIA [None]
  - WHITE BLOOD CELL COUNT DECREASED [None]
